FAERS Safety Report 19146316 (Version 1)
Quarter: 2021Q2

REPORT INFORMATION
  Report Type: Spontaneous
  Country: IN (occurrence: IN)
  Receive Date: 20210416
  Receipt Date: 20210416
  Transmission Date: 20210717
  Serious: Yes (Death)
  Sender: FDA-Public Use
  Company Number: IN-PFIZER INC-2019138420

PATIENT
  Age: 46 Year
  Sex: Female

DRUGS (1)
  1. PALBACE [Suspect]
     Active Substance: PALBOCICLIB
     Indication: BREAST CANCER METASTATIC
     Dosage: 125 MG, ONCE A DAY FOR CYCLE ON FIRST OF EVERY MONTH FOR 21 DAYS THEN BREAK
     Route: 048
     Dates: start: 20181204, end: 20200914

REACTIONS (3)
  - Death [Fatal]
  - Diarrhoea [Unknown]
  - Anxiety [Unknown]
